FAERS Safety Report 6368642-4 (Version None)
Quarter: 2009Q3

REPORT INFORMATION
  Report Type: 
  Country: None (occurrence: None)
  Receive Date: 20090917
  Receipt Date: 20090917
  Transmission Date: 20100115
  Serious: Yes (Disabling)
  Sender: FDA-Public Use
  Company Number: None

PATIENT
  Sex: Female
  Weight: 56.246 kg

DRUGS (2)
  1. RECLAST [Suspect]
     Indication: OSTEOPENIA
     Dosage: 5MG JAN. 2008 INJECTION; 5MG JAN. 21, 2009, INJECTION
     Dates: start: 20080101
  2. RECLAST [Suspect]
     Indication: OSTEOPENIA
     Dosage: 5MG JAN. 2008 INJECTION; 5MG JAN. 21, 2009, INJECTION
     Dates: start: 20090121

REACTIONS (7)
  - ARTHRALGIA [None]
  - ASTHENIA [None]
  - BACK PAIN [None]
  - BONE PAIN [None]
  - INFLUENZA LIKE ILLNESS [None]
  - MUSCLE SPASMS [None]
  - PAIN IN EXTREMITY [None]
